FAERS Safety Report 11830824 (Version 2)
Quarter: 2015Q4

REPORT INFORMATION
  Report Type: Spontaneous
  Country: BR (occurrence: BR)
  Receive Date: 20151214
  Receipt Date: 20151226
  Transmission Date: 20160305
  Serious: Yes (Other)
  Sender: FDA-Public Use
  Company Number: BR-ACCORD-036025

PATIENT
  Age: 60 Year
  Sex: Female
  Weight: 51.3 kg

DRUGS (6)
  1. DEXAMETHASONE. [Concomitant]
     Active Substance: DEXAMETHASONE
     Dosage: DAILY DOSAGE: 10 MG/1 AMPOULE
     Route: 042
     Dates: start: 20151119, end: 20151119
  2. DIPHENHYDRAMINE. [Concomitant]
     Active Substance: DIPHENHYDRAMINE
     Dosage: S. F. 100 ML + DIPHENHYDRAMINE?DAILY DOSAGE: 1 AMPOULE
     Route: 042
     Dates: start: 20151119, end: 20151119
  3. RANITIDINE [Concomitant]
     Active Substance: RANITIDINE\RANITIDINE HYDROCHLORIDE
     Dosage: STRENGTH: 50 MG/2 ML ?DAILY DOSAGE: 1 AMPOULE
     Route: 042
     Dates: start: 20151119, end: 20151119
  4. PACLITAXEL/PACLITAXEL LIPOSOME [Suspect]
     Active Substance: PACLITAXEL
     Indication: LUNG CARCINOMA CELL TYPE UNSPECIFIED STAGE I
     Dosage: QT PROTOCOL: PACLITAXEL 175 MG/M2 + CISPLATIN 75 MG/M2 AT EVERY 21 DAYS
     Route: 042
     Dates: start: 20151119, end: 20151119
  5. ONDANSETRON [Concomitant]
     Active Substance: ONDANSETRON
     Dosage: DAILY DOSAGE: 10 MG/1 AMPOULE
     Route: 042
     Dates: start: 20151119, end: 20151119
  6. CISPLATIN. [Concomitant]
     Active Substance: CISPLATIN
     Indication: LUNG CARCINOMA CELL TYPE UNSPECIFIED STAGE I
     Dosage: QT PROTOCOL: PACLITAXEL 175 MG/M2 + CISPLATIN 75 MG/M2 AT EVERY 21 DAYS
     Dates: start: 20151029

REACTIONS (8)
  - Infusion related reaction [None]
  - Hypertension [Recovered/Resolved]
  - Chest pain [Recovered/Resolved]
  - Erythema [Recovered/Resolved]
  - Pulmonary arterial pressure increased [None]
  - Hypoxia [Recovered/Resolved]
  - Generalised erythema [Recovered/Resolved]
  - Feeling hot [Recovered/Resolved]

NARRATIVE: CASE EVENT DATE: 20151119
